FAERS Safety Report 12588210 (Version 1)
Quarter: 2016Q3

REPORT INFORMATION
  Report Type: Spontaneous
  Country: US (occurrence: US)
  Receive Date: 20160725
  Receipt Date: 20160725
  Transmission Date: 20161109
  Serious: No
  Sender: FDA-Public Use
  Company Number: US-MYLANLABS-2015M1045233

PATIENT
  Sex: Female

DRUGS (2)
  1. BOTOX [Suspect]
     Active Substance: ONABOTULINUMTOXINA
     Indication: CYSTITIS INTERSTITIAL
     Dosage: 100 IU, ONCE
     Route: 030
     Dates: start: 201401, end: 201401
  2. TIMOLOL MALEATE TABLETS, USP [Suspect]
     Active Substance: TIMOLOL MALEATE
     Indication: HYPERTENSION
     Dosage: 5 MG, BID
     Route: 048

REACTIONS (6)
  - Urticaria [Not Recovered/Not Resolved]
  - Sneezing [Not Recovered/Not Resolved]
  - Dyspnoea [Not Recovered/Not Resolved]
  - Neuralgia [Not Recovered/Not Resolved]
  - Palpitations [Not Recovered/Not Resolved]
  - Chills [Not Recovered/Not Resolved]

NARRATIVE: CASE EVENT DATE: 2008
